FAERS Safety Report 4550657-X (Version None)
Quarter: 2004Q4

REPORT INFORMATION
  Report Type: 
  Country: None (occurrence: None)
  Receive Date: 20041227
  Receipt Date: 20040903
  Transmission Date: 20050328
  Serious: No
  Sender: FDA-Public Use
  Company Number: 04P-163-0272405-00

PATIENT
  Age: 61 Year
  Sex: Female
  Weight: 56.6996 kg

DRUGS (9)
  1. HUMIRA [Suspect]
     Indication: RHEUMATOID ARTHRITIS
     Dosage: 40 MG, 1 IN 2 WK, SUBCUTANEOUS
     Route: 058
     Dates: start: 20030101
  2. BUCINDOLOL HYDROCHLORIDE [Concomitant]
  3. HYDROXYCHLOROQUINE PHOSPHATE [Concomitant]
  4. CALCIUM GLUCONATE [Concomitant]
  5. TOCOPHEROL CONCENTRATE CAP [Concomitant]
  6. METHOTREXATE SODIUM [Concomitant]
  7. FOLIC ACID [Concomitant]
  8. ALENDRONATE SODIUM [Concomitant]
  9. MULTI-VITAMINS [Concomitant]

REACTIONS (2)
  - HYPOAESTHESIA [None]
  - PARAESTHESIA [None]
